FAERS Safety Report 9107205 (Version 7)
Quarter: 2017Q2

REPORT INFORMATION
  Report Type: Report from Study
  Country: JP (occurrence: JP)
  Receive Date: 20130221
  Receipt Date: 20170524
  Transmission Date: 20170830
  Serious: Yes (Death, Hospitalization, Other)
  Sender: FDA-Public Use
  Company Number: JP-PFIZER INC-2012075310

PATIENT
  Age: 59 Year
  Sex: Male
  Weight: 68 kg

DRUGS (12)
  1. GASMOTIN [Concomitant]
     Active Substance: MOSAPRIDE CITRATE
     Indication: ENDOSCOPY GASTROINTESTINAL
     Dosage: 5 MG, 3X/DAY
     Route: 048
     Dates: start: 20120318, end: 20120318
  2. AZULFIDINE [Concomitant]
     Active Substance: SULFASALAZINE
     Indication: RHEUMATOID ARTHRITIS
     Dosage: 500 MG, 2X/DAY
     Route: 048
     Dates: start: 20100619, end: 20120330
  3. LAXODATE [Concomitant]
     Indication: ENDOSCOPY GASTROINTESTINAL
     Dosage: 5 MG, 1X/DAY
     Route: 048
     Dates: start: 20120318, end: 20120318
  4. METHYCOOL [Concomitant]
     Active Substance: METHYLCOBALAMIN
     Indication: SPINAL COLUMN STENOSIS
     Dosage: 0.5 MG, 3X/DAY
     Route: 048
     Dates: start: 20110625, end: 20120330
  5. ISODINE [Concomitant]
     Active Substance: POVIDONE-IODINE
     Indication: ORAL CANDIDIASIS
     Dosage: AS NEEDED
     Dates: start: 20110305, end: 20120319
  6. LIMARMONE [Concomitant]
     Active Substance: LIMAPROST
     Indication: SPINAL COLUMN STENOSIS
     Dosage: 5 UG, 3X/DAY
     Route: 048
     Dates: start: 20111114, end: 20120319
  7. MAGCOROL P [Concomitant]
     Active Substance: MAGNESIUM CITRATE
     Indication: ENDOSCOPY GASTROINTESTINAL
     Dosage: 64 G, 1X/DAY
     Route: 048
     Dates: start: 20120318, end: 20120318
  8. PREDNISOLONE. [Concomitant]
     Active Substance: PREDNISOLONE
     Indication: RHEUMATOID ARTHRITIS
     Dosage: 5 MG, 2X/DAY
     Route: 048
     Dates: start: 20090912, end: 20120330
  9. CRESTOR [Concomitant]
     Active Substance: ROSUVASTATIN CALCIUM
     Indication: HYPERLIPIDAEMIA
     Dosage: 2.5 MG, ALTERNATE DAY
     Route: 048
     Dates: start: 20100917, end: 20120330
  10. TOFACITINIB CITRATE [Suspect]
     Active Substance: TOFACITINIB CITRATE
     Indication: RHEUMATOID ARTHRITIS
     Dosage: 5 MG, 2X/DAY
     Route: 048
     Dates: start: 20100228, end: 20120323
  11. GASPORT [Concomitant]
     Active Substance: FAMOTIDINE
     Indication: GASTRITIS PROPHYLAXIS
     Dosage: 10 MG, 2X/DAY
     Route: 048
     Dates: start: 20090912, end: 20120330
  12. SENNOSIDE [Concomitant]
     Active Substance: SENNOSIDES
     Indication: CONSTIPATION
     Dosage: 12 MG, AS NEEDED
     Route: 048
     Dates: start: 20120204, end: 20120330

REACTIONS (5)
  - Metastases to peritoneum [Fatal]
  - Metastases to lung [Fatal]
  - Metastases to lymph nodes [Fatal]
  - Metastases to liver [Fatal]
  - Colorectal adenocarcinoma [Fatal]

NARRATIVE: CASE EVENT DATE: 20120319
